FAERS Safety Report 8784168 (Version 1)
Quarter: 2012Q4

REPORT INFORMATION
  Report Type: 
  Country: US (occurrence: US)
  Receive Date: 20120913
  Receipt Date: 20120913
  Transmission Date: 20130627
  Serious: No
  Sender: FDA-Public Use
  Company Number: US-ASTRAZENECA-2012SE69245

PATIENT
  Age: 83 Year
  Sex: Female
  Weight: 59 kg

DRUGS (4)
  1. SYMBICORT [Suspect]
     Indication: CHRONIC OBSTRUCTIVE PULMONARY DISEASE
     Dosage: 320 MCG,160/4.5 MCG, 2 PUFFS, TWO TIMES A DAY
     Route: 055
     Dates: start: 2010
  2. SYMBICORT [Suspect]
     Indication: CHRONIC OBSTRUCTIVE PULMONARY DISEASE
     Dosage: 160/4.5 MCG, 1 PUFFS, TWO TIMES A DAY
     Route: 055
     Dates: start: 201208
  3. SPIREVA [Concomitant]
  4. THYROID MEDICATION [Concomitant]
     Indication: THYROID DISORDER

REACTIONS (4)
  - Dyspnoea [Unknown]
  - Multiple allergies [Unknown]
  - Cough [Unknown]
  - Intentional drug misuse [Unknown]
